FAERS Safety Report 8699425 (Version 3)
Quarter: 2014Q3

REPORT INFORMATION
  Report Type: Spontaneous
  Country: US (occurrence: US)
  Receive Date: 20120802
  Receipt Date: 20140812
  Transmission Date: 20150326
  Serious: No
  Sender: FDA-Public Use
  Company Number: US-BRISTOL-MYERS SQUIBB COMPANY-16273252

PATIENT
  Age: 51 Year
  Sex: Female
  Weight: 78 kg

DRUGS (8)
  1. VITAMIN B1 [Concomitant]
     Active Substance: THIAMINE HYDROCHLORIDE
  2. TRUVADA [Suspect]
     Active Substance: EMTRICITABINE\TENOFOVIR DISOPROXIL FUMARATE
  3. VICODIN [Concomitant]
     Active Substance: ACETAMINOPHEN\HYDROCODONE BITARTRATE
  4. VITAMIN D [Concomitant]
     Active Substance: CHOLECALCIFEROL
  5. BENFOTIAMINE [Concomitant]
     Active Substance: BENFOTIAMINE
  6. REYATAZ [Suspect]
     Active Substance: ATAZANAVIR SULFATE
     Indication: HIV INFECTION
     Route: 048
     Dates: start: 201111
  7. NORVIR [Suspect]
     Active Substance: RITONAVIR
  8. IRON [Concomitant]
     Active Substance: IRON

REACTIONS (8)
  - Pruritus [Unknown]
  - Weight increased [Unknown]
  - Drug dose omission [Unknown]
  - Headache [Unknown]
  - Seasonal allergy [Unknown]
  - Swelling face [Unknown]
  - Abdominal pain upper [Unknown]
  - Sinus disorder [Unknown]
